FAERS Safety Report 8770006 (Version 3)
Quarter: 2013Q1

REPORT INFORMATION
  Report Type: Spontaneous
  Country: US (occurrence: US)
  Receive Date: 20120905
  Receipt Date: 20130306
  Transmission Date: 20140127
  Serious: Yes (Other)
  Sender: FDA-Public Use
  Company Number: US-BAYER-2012-090232

PATIENT
  Age: 24 Year
  Sex: Female

DRUGS (1)
  1. MIRENA [Suspect]
     Indication: CONTRACEPTION
     Dosage: 20 MCG/24HR, CONT
     Route: 015
     Dates: start: 20120725, end: 20120816

REACTIONS (13)
  - Procedural pain [None]
  - Device dislocation [None]
  - Abdominal pain [None]
  - Malaise [None]
  - Procedural nausea [None]
  - Cold sweat [None]
  - Pain [None]
  - Abdominal pain [None]
  - Post procedural discomfort [None]
  - Poor quality sleep [None]
  - Vaginal haemorrhage [None]
  - Procedural pain [None]
  - Uterine pain [Not Recovered/Not Resolved]
